FAERS Safety Report 24329373 (Version 1)
Quarter: 2024Q3

REPORT INFORMATION
  Report Type: Report from Study
  Country: IL (occurrence: IL)
  Receive Date: 20240917
  Receipt Date: 20240917
  Transmission Date: 20241016
  Serious: Yes (Hospitalization)
  Sender: ABBVIE
  Company Number: IL-ABBVIE-4141255

PATIENT
  Age: 70 Year
  Sex: Male
  Weight: 73 kg

DRUGS (22)
  1. VENCLEXTA [Suspect]
     Active Substance: VENETOCLAX
     Indication: Chronic lymphocytic leukaemia
     Dosage: DURATION TEXT: RAMP UP
     Route: 048
     Dates: start: 20210727, end: 20210803
  2. VENCLEXTA [Suspect]
     Active Substance: VENETOCLAX
     Indication: Chronic lymphocytic leukaemia
     Dosage: DURATION TEXT: RAMP UP
     Route: 048
     Dates: start: 20210804, end: 20210810
  3. VENCLEXTA [Suspect]
     Active Substance: VENETOCLAX
     Indication: Chronic lymphocytic leukaemia
     Dosage: DISCONTINUATION: TREATMENT COMPLETION
     Route: 048
     Dates: start: 20220111, end: 202307
  4. VENCLEXTA [Suspect]
     Active Substance: VENETOCLAX
     Indication: Chronic lymphocytic leukaemia
     Dosage: MODIFICATION TO THE DAILY DOSE DUE TO AE
     Route: 048
     Dates: start: 20211124, end: 20220110
  5. VENCLEXTA [Suspect]
     Active Substance: VENETOCLAX
     Indication: Chronic lymphocytic leukaemia
     Dosage: DURATION TEXT: RAMP UP
     Route: 048
     Dates: start: 20210818, end: 20210824
  6. VENCLEXTA [Suspect]
     Active Substance: VENETOCLAX
     Indication: Chronic lymphocytic leukaemia
     Dosage: 400 MILLIGRAM
     Route: 048
     Dates: start: 20210825, end: 20211123
  7. VENCLEXTA [Suspect]
     Active Substance: VENETOCLAX
     Indication: Chronic lymphocytic leukaemia
     Dosage: DURATION TEXT: RAMP UP
     Route: 048
     Dates: start: 20210811, end: 20210817
  8. NEXIUM [Concomitant]
     Active Substance: ESOMEPRAZOLE MAGNESIUM
     Indication: Gastritis
     Dates: start: 20210727
  9. ALDACTONE [Concomitant]
     Active Substance: SPIRONOLACTONE
     Indication: Cardiac failure
     Dates: start: 20210629
  10. Fusid [Concomitant]
     Indication: Oedema peripheral
     Dosage: ONGOING
     Dates: start: 20210629
  11. OBINUTUZUMAB [Suspect]
     Active Substance: OBINUTUZUMAB
     Indication: Chronic lymphocytic leukaemia
     Dosage: DURATION TEXT: CYCLE 3
     Route: 065
     Dates: start: 20210713, end: 20210713
  12. OBINUTUZUMAB [Suspect]
     Active Substance: OBINUTUZUMAB
     Indication: Chronic lymphocytic leukaemia
     Route: 065
     Dates: start: 20211123, end: 20211123
  13. OBINUTUZUMAB [Suspect]
     Active Substance: OBINUTUZUMAB
     Indication: Chronic lymphocytic leukaemia
     Dosage: DURATION TEXT: CYCLE 6
     Route: 065
     Dates: start: 20210831, end: 20210831
  14. OBINUTUZUMAB [Suspect]
     Active Substance: OBINUTUZUMAB
     Indication: Chronic lymphocytic leukaemia
     Dosage: DURATION TEXT: CYCLE 1
     Route: 065
     Dates: start: 20210706, end: 20210706
  15. OBINUTUZUMAB [Suspect]
     Active Substance: OBINUTUZUMAB
     Indication: Chronic lymphocytic leukaemia
     Dosage: DURATION TEXT: CYCLE 2
     Route: 065
     Dates: start: 20210707, end: 20210707
  16. OBINUTUZUMAB [Suspect]
     Active Substance: OBINUTUZUMAB
     Indication: Chronic lymphocytic leukaemia
     Route: 065
     Dates: start: 20211026, end: 20211026
  17. OBINUTUZUMAB [Suspect]
     Active Substance: OBINUTUZUMAB
     Indication: Chronic lymphocytic leukaemia
     Route: 065
     Dates: start: 20210928, end: 20210928
  18. OBINUTUZUMAB [Suspect]
     Active Substance: OBINUTUZUMAB
     Indication: Chronic lymphocytic leukaemia
     Dosage: DURATION TEXT: CYCLE 4
     Route: 065
     Dates: start: 20210720, end: 20210720
  19. OBINUTUZUMAB [Suspect]
     Active Substance: OBINUTUZUMAB
     Indication: Chronic lymphocytic leukaemia
     Dosage: DURATION TEXT: CYCLE 5
     Route: 065
     Dates: start: 20210803, end: 20210803
  20. BISOPROLOL FUMARATE [Concomitant]
     Active Substance: BISOPROLOL FUMARATE
     Indication: Cardiac failure
     Dates: start: 20110313
  21. ALLOPURINOL [Concomitant]
     Active Substance: ALLOPURINOL
     Indication: Renal failure
     Dates: start: 20210706
  22. SULFAMETHOXAZOLE\TRIMETHOPRIM [Concomitant]
     Active Substance: SULFAMETHOXAZOLE\TRIMETHOPRIM
     Indication: Prophylaxis
     Dates: start: 20210119

REACTIONS (3)
  - COVID-19 [Recovered/Resolved]
  - COVID-19 [Recovered/Resolved]
  - Neutropenia [Recovered/Resolved]

NARRATIVE: CASE EVENT DATE: 20211123
